FAERS Safety Report 6158241-1 (Version None)
Quarter: 2009Q2

REPORT INFORMATION
  Report Type: 
  Country: None (occurrence: None)
  Receive Date: 20090417
  Receipt Date: 20090414
  Transmission Date: 20091009
  Serious: Yes (Disabling)
  Sender: FDA-Public Use
  Company Number: FR-ASTRAZENECA-2009CG00520

PATIENT
  Age: 89 Year
  Sex: Female
  Weight: 63 kg

DRUGS (5)
  1. ATACAND [Suspect]
     Indication: HYPERTENSION
     Route: 048
     Dates: end: 20081101
  2. ATACAND [Interacting]
     Route: 048
     Dates: start: 20081101
  3. FLUDEX [Interacting]
     Route: 048
     Dates: start: 20081101
  4. KARDEGIC [Concomitant]
     Dates: start: 20040101
  5. TANAKAN [Concomitant]
     Route: 048
     Dates: start: 20040101

REACTIONS (2)
  - DIZZINESS [None]
  - DRUG INTERACTION [None]
